FAERS Safety Report 9110098 (Version 2)
Quarter: 2013Q1

REPORT INFORMATION
  Report Type: Spontaneous
  Country: US (occurrence: US)
  Receive Date: 20130222
  Receipt Date: 20130326
  Transmission Date: 20140127
  Serious: No
  Sender: FDA-Public Use
  Company Number: US-ASTRAZENECA-2012SE69587

PATIENT
  Age: 52 Year
  Sex: Female
  Weight: 63.5 kg

DRUGS (8)
  1. SEROQUEL XR [Suspect]
     Indication: MOOD ALTERED
     Route: 048
  2. SEROQUEL XR [Suspect]
     Indication: SCHIZOPHRENIA
     Route: 048
  3. SEROQUEL XR [Suspect]
     Indication: MOOD ALTERED
     Route: 048
  4. SEROQUEL XR [Suspect]
     Indication: SCHIZOPHRENIA
     Route: 048
  5. SEROQUEL XR [Suspect]
     Indication: MOOD ALTERED
     Route: 048
  6. SEROQUEL XR [Suspect]
     Indication: SCHIZOPHRENIA
     Route: 048
  7. AMBIEN [Concomitant]
     Indication: SLEEP DISORDER
  8. ALPRAZOLAM [Concomitant]
     Indication: ANXIETY

REACTIONS (6)
  - Adverse event [Unknown]
  - Headache [Not Recovered/Not Resolved]
  - Malaise [Unknown]
  - Influenza [Unknown]
  - Off label use [Unknown]
  - Drug dose omission [Unknown]
